FAERS Safety Report 21278508 (Version 1)
Quarter: 2022Q3

REPORT INFORMATION
  Report Type: Report from Study
  Country: US (occurrence: US)
  Receive Date: 20220831
  Receipt Date: 20220831
  Transmission Date: 20221027
  Serious: Yes (Hospitalization, Other)
  Sender: FDA-Public Use
  Company Number: US-JNJFOC-20220858061

PATIENT
  Sex: Female

DRUGS (1)
  1. RIVAROXABAN [Suspect]
     Active Substance: RIVAROXABAN
     Indication: Product used for unknown indication
     Route: 048

REACTIONS (5)
  - Haemorrhage [Unknown]
  - Epistaxis [Unknown]
  - Cardiac pacemaker insertion [Unknown]
  - Hypoacusis [Unknown]
  - Aneurysm [Unknown]
